FAERS Safety Report 6692364-3 (Version None)
Quarter: 2010Q2

REPORT INFORMATION
  Report Type: 
  Country: None (occurrence: None)
  Receive Date: 20100422
  Receipt Date: 20100415
  Transmission Date: 20101027
  Serious: Yes (Hospitalization)
  Sender: FDA-Public Use
  Company Number: BR-ASTRAZENECA-2010SE16916

PATIENT
  Age: 64 Year
  Sex: Male
  Weight: 73 kg

DRUGS (6)
  1. CRESTOR [Suspect]
     Indication: BLOOD CHOLESTEROL INCREASED
     Route: 048
     Dates: start: 20081001, end: 20100101
  2. CRESTOR [Suspect]
     Route: 048
  3. APROZIDE [Concomitant]
     Indication: HYPERTENSION
     Dosage: OD
     Route: 048
     Dates: start: 20081001, end: 20091201
  4. LOSARTAN POTASSIUM [Concomitant]
     Indication: HYPERTENSION
     Route: 048
     Dates: start: 20091201, end: 20100301
  5. HYDROCHLOROTHIAZIDE [Concomitant]
     Indication: HYPERTENSION
     Route: 048
     Dates: start: 20091201, end: 20100301
  6. ASA PEDIATRIC [Concomitant]
     Indication: ANTIPLATELET THERAPY
     Dosage: OD
     Route: 048
     Dates: start: 20020101

REACTIONS (3)
  - CAROTID ARTERY THROMBOSIS [None]
  - DIZZINESS [None]
  - HEADACHE [None]
